FAERS Safety Report 23412355 (Version 1)
Quarter: 2024Q1

REPORT INFORMATION
  Report Type: Spontaneous
  Country: US (occurrence: US)
  Receive Date: 20240117
  Receipt Date: 20240117
  Transmission Date: 20240409
  Serious: No
  Sender: FDA-Public Use
  Company Number: US-NOVOPROD-1090363

PATIENT

DRUGS (1)
  1. OZEMPIC [Suspect]
     Active Substance: SEMAGLUTIDE
     Indication: Diabetes mellitus
     Dosage: UNK
     Route: 058
     Dates: start: 2022

REACTIONS (5)
  - Weight increased [Unknown]
  - Food craving [Unknown]
  - Glycosylated haemoglobin increased [Unknown]
  - Suspected product tampering [Unknown]
  - Product quality issue [Unknown]
